FAERS Safety Report 5469743-5 (Version None)
Quarter: 2007Q3

REPORT INFORMATION
  Report Type: 
  Country: None (occurrence: None)
  Receive Date: 20070926
  Receipt Date: 20070926
  Transmission Date: 20080115
  Serious: No
  Sender: FDA-Public Use
  Company Number: None

PATIENT
  Sex: Female
  Weight: 57.2 kg

DRUGS (1)
  1. CISPLATIN [Suspect]
     Dosage: 64 MG
     Dates: start: 20070807, end: 20070813

REACTIONS (1)
  - LYMPHOPENIA [None]
